FAERS Safety Report 24281173 (Version 6)
Quarter: 2024Q4

REPORT INFORMATION
  Report Type: Spontaneous
  Country: CA (occurrence: CA)
  Receive Date: 20240904
  Receipt Date: 20241224
  Transmission Date: 20250115
  Serious: Yes (Hospitalization, Other)
  Sender: CELLTRION
  Company Number: CA-PFIZER INC-PV202400055123

PATIENT

DRUGS (3)
  1. INFLECTRA [Suspect]
     Active Substance: INFLIXIMAB-DYYB
     Indication: Crohn^s disease
     Dosage: EVERY 4 WEEKS
  2. INFLECTRA [Suspect]
     Active Substance: INFLIXIMAB-DYYB
     Dosage: EVERY 4 WEEKS
     Dates: start: 20240523, end: 20240523
  3. INFLECTRA [Suspect]
     Active Substance: INFLIXIMAB-DYYB
     Dosage: EVERY 4 WEEKS
     Dates: start: 20241122, end: 20241122

REACTIONS (6)
  - Sepsis [Unknown]
  - Pneumonia [Unknown]
  - Cardiac disorder [Unknown]
  - Bone disorder [Unknown]
  - Foot operation [Unknown]
  - Illness [Unknown]

NARRATIVE: CASE EVENT DATE: 20240101
